FAERS Safety Report 6766164 (Version 3)
Quarter: 2013Q3

REPORT INFORMATION
  Report Type: Spontaneous
  Country: DE (occurrence: DE)
  Receive Date: 20080922
  Receipt Date: 20130910
  Transmission Date: 20140515
  Serious: Yes (Death, Other)
  Sender: FDA-Public Use
  Company Number: DE-AMGEN-UK306978

PATIENT
  Sex: Female
  Weight: 40 kg

DRUGS (2)
  1. VECTIBIX [Suspect]
     Indication: PRODUCT USED FOR UNKNOWN INDICATION
  2. DEXAMETHASONE [Concomitant]

REACTIONS (4)
  - Malignant neoplasm progression [Fatal]
  - Dermatitis acneiform [Unknown]
  - Neuralgia [Unknown]
  - Rash [Unknown]
